FAERS Safety Report 7429369-0 (Version None)
Quarter: 2011Q2

REPORT INFORMATION
  Report Type: 
  Country: None (occurrence: None)
  Receive Date: 20110414
  Receipt Date: 20110401
  Transmission Date: 20111010
  Serious: Yes (Life-Threatening, Hospitalization)
  Sender: FDA-Public Use
  Company Number: 022133

PATIENT
  Sex: Female
  Weight: 70 kg

DRUGS (3)
  1. LAMIVUDINE [Suspect]
     Indication: HEPATITIS C
     Dosage: (100 MG QD ORAL)
     Route: 048
     Dates: end: 20101101
  2. KEPPRA [Suspect]
     Indication: EPILEPSY
     Dosage: (500 MG BID ORAL)
     Route: 048
     Dates: start: 20101101
  3. PHENYTOIN [Suspect]
     Indication: EPILEPSY
     Dosage: (300 MG ORAL)
     Route: 048
     Dates: start: 20080101, end: 20101101

REACTIONS (3)
  - TOXIC EPIDERMAL NECROLYSIS [None]
  - THERMAL BURN [None]
  - LACTIC ACIDOSIS [None]
